FAERS Safety Report 25126568 (Version 1)
Quarter: 2025Q1

REPORT INFORMATION
  Report Type: Spontaneous
  Country: JP (occurrence: JP)
  Receive Date: 20250327
  Receipt Date: 20250327
  Transmission Date: 20250408
  Serious: Yes (Death, Other)
  Sender: JAZZ
  Company Number: JP-JAZZ PHARMACEUTICALS-2025-JP-007925

PATIENT
  Age: 6 Decade
  Sex: Female

DRUGS (2)
  1. DEFITELIO [Suspect]
     Active Substance: DEFIBROTIDE SODIUM
     Indication: Venoocclusive liver disease
     Dosage: 1600 MILLIGRAM, QD
     Route: 042
     Dates: start: 20250131, end: 20250223
  2. INSULIN BEEF [Suspect]
     Active Substance: INSULIN BEEF
     Indication: Diabetes mellitus
     Route: 042

REACTIONS (4)
  - Rash [Fatal]
  - Sepsis [Fatal]
  - Liver disorder [Fatal]
  - Venoocclusive liver disease [Fatal]

NARRATIVE: CASE EVENT DATE: 20250210
